FAERS Safety Report 17453035 (Version 1)
Quarter: 2020Q1

REPORT INFORMATION
  Report Type: Spontaneous
  Country: CN (occurrence: CN)
  Receive Date: 20200224
  Receipt Date: 20200224
  Transmission Date: 20200409
  Serious: Yes (Life-Threatening)
  Sender: FDA-Public Use
  Company Number: CN-BAYER-2020-026943

PATIENT
  Sex: Female

DRUGS (1)
  1. AVELOX [Suspect]
     Active Substance: MOXIFLOXACIN HYDROCHLORIDE
     Indication: TONSILLITIS BACTERIAL
     Dosage: 0.4 G, QD
     Route: 041
     Dates: start: 20200127, end: 20200127

REACTIONS (8)
  - Syncope [Recovering/Resolving]
  - Hyperhidrosis [Recovering/Resolving]
  - Loss of consciousness [Recovering/Resolving]
  - Pharyngeal haemorrhage [None]
  - Dizziness [Recovering/Resolving]
  - Product use in unapproved indication [None]
  - Depressed mood [None]
  - Off label use [None]

NARRATIVE: CASE EVENT DATE: 20200127
